FAERS Safety Report 7290795-4 (Version None)
Quarter: 2011Q1

REPORT INFORMATION
  Report Type: 
  Country: None (occurrence: None)
  Receive Date: 20110214
  Receipt Date: 20110203
  Transmission Date: 20110831
  Serious: Yes (Hospitalization)
  Sender: FDA-Public Use
  Company Number: JP-ROCHE-758852

PATIENT
  Sex: Male
  Weight: 54 kg

DRUGS (10)
  1. COMELIAN [Concomitant]
     Dosage: DOSAGE IS UNCERTAIN.
     Route: 048
     Dates: start: 20100104, end: 20101119
  2. LOXONIN [Concomitant]
     Dosage: DOSAGE IS UNCERTAIN.
     Route: 048
     Dates: start: 20100317, end: 20100319
  3. FLOMOX [Concomitant]
     Dosage: DOSAGE IS UNCERTAIN.
     Route: 048
     Dates: start: 20100317, end: 20100319
  4. DIOVAN [Concomitant]
     Dosage: DOSAGE IS UNCERTAIN.
     Route: 048
     Dates: start: 20100104, end: 20100904
  5. GASTER D [Concomitant]
     Dosage: DOSAGE IS UNCERTAIN.
     Route: 048
     Dates: start: 20100104, end: 20100904
  6. MEROPENEM [Concomitant]
     Dosage: DOSAGE IS UNCERTAIN.
     Route: 042
     Dates: start: 20100321, end: 20100325
  7. CELECTOL [Concomitant]
     Dosage: DOSAGE IS UNCERTAIN.
     Route: 049
     Dates: start: 20100104, end: 20100319
  8. CEFTAZIDIME [Concomitant]
     Dosage: DOSAGE IS UNCERTAIN.
     Route: 040
     Dates: start: 20100319, end: 20100320
  9. D-ALFA [Concomitant]
     Dosage: DOSAGE IS UNCERTAIN.
     Route: 048
     Dates: start: 20100104
  10. ROCEPHIN [Suspect]
     Indication: SHUNT INFECTION
     Route: 042
     Dates: start: 20100319, end: 20100319

REACTIONS (1)
  - LIVER DISORDER [None]
